FAERS Safety Report 15136592 (Version 2)
Quarter: 2018Q3

REPORT INFORMATION
  Report Type: Report from Study
  Country: US (occurrence: US)
  Receive Date: 20180712
  Receipt Date: 20180731
  Transmission Date: 20181010
  Serious: Yes (Death, Hospitalization, Other)
  Sender: FDA-Public Use
  Company Number: US-ACTELION-A-NJ2016-131917

PATIENT
  Age: 64 Year
  Sex: Female
  Weight: 79.37 kg

DRUGS (17)
  1. OPSUMIT [Suspect]
     Active Substance: MACITENTAN
     Indication: PULMONARY ARTERIAL HYPERTENSION
     Dosage: 10 MG, QD
     Route: 048
  2. ASPIRIN. [Concomitant]
     Active Substance: ASPIRIN
     Dosage: 81 MG, EVERY OTHER DAY
     Route: 048
  3. METOLAZONE. [Concomitant]
     Active Substance: METOLAZONE
     Dosage: 5 MG, QD
     Route: 048
  4. WARFARIN [Concomitant]
     Active Substance: WARFARIN
  5. HUMALOG [Concomitant]
     Active Substance: INSULIN LISPRO
     Dosage: 75 ? 25 KWIK PEN AS DIRECTED
     Route: 058
  6. LANTUS [Concomitant]
     Active Substance: INSULIN GLARGINE
     Dosage: 100 U/ML, 20 UNITS AT BEDTIME
  7. MEGESTROL [Concomitant]
     Active Substance: MEGESTROL
     Dosage: 20 MG, UNK
  8. PROMETHAZINE [Concomitant]
     Active Substance: PROMETHAZINE\PROMETHAZINE HYDROCHLORIDE
     Dosage: 25 MG, Q6HRS
  9. VITAMIN D [Concomitant]
     Active Substance: CHOLECALCIFEROL
     Dosage: 400 MG, QD
  10. ADEMPAS [Suspect]
     Active Substance: RIOCIGUAT
     Indication: PRODUCT USED FOR UNKNOWN INDICATION
     Dosage: 1.5 MG, UNK
     Route: 065
  11. ADCIRCA [Concomitant]
     Active Substance: TADALAFIL
  12. ALLOPURINOL. [Concomitant]
     Active Substance: ALLOPURINOL
     Dosage: 100 MG, QD
     Route: 048
  13. ONDANSETRON [Concomitant]
     Active Substance: ONDANSETRON
     Dosage: 4 MG, Q8HRS.
  14. SILDENAFIL CITRATE. [Concomitant]
     Active Substance: SILDENAFIL CITRATE
  15. MEDROL [Concomitant]
     Active Substance: METHYLPREDNISOLONE
     Dosage: 4 MG, AS DIRECTED
  16. MIDODRINE [Concomitant]
     Active Substance: MIDODRINE
     Dosage: 2.5 MG, TID
  17. NITROSTAT [Concomitant]
     Active Substance: NITROGLYCERIN
     Dosage: 0.4 MG, PRN X3 DOSES
     Route: 060

REACTIONS (16)
  - Pulmonary arterial hypertension [Unknown]
  - Nasopharyngitis [Unknown]
  - Chest pain [Unknown]
  - Hypotension [Unknown]
  - Decreased appetite [Unknown]
  - Fatigue [Unknown]
  - Tricuspid valve disease [Unknown]
  - Cardiac failure congestive [Unknown]
  - Muscular weakness [Unknown]
  - Wheezing [Unknown]
  - Death [Fatal]
  - Cough [Unknown]
  - Pain in extremity [Unknown]
  - Arteriosclerosis [Unknown]
  - Proteinuria [Unknown]
  - Atrial fibrillation [Unknown]

NARRATIVE: CASE EVENT DATE: 201806
